FAERS Safety Report 25826518 (Version 1)
Quarter: 2025Q3

REPORT INFORMATION
  Report Type: Spontaneous
  Country: CN (occurrence: CN)
  Receive Date: 20250920
  Receipt Date: 20250920
  Transmission Date: 20251020
  Serious: Yes (Other)
  Sender: MERCK SHARP & DOHME LLC
  Company Number: CN-009507513-2328915

PATIENT
  Age: 71 Year
  Sex: Male

DRUGS (2)
  1. KEYTRUDA [Suspect]
     Active Substance: PEMBROLIZUMAB
     Indication: Lung squamous cell carcinoma recurrent
     Route: 041
     Dates: start: 20250326, end: 20250626
  2. CATEQUENTINIB [Suspect]
     Active Substance: CATEQUENTINIB
     Indication: Lung squamous cell carcinoma recurrent
     Route: 048

REACTIONS (3)
  - Hypothyroidism [Recovering/Resolving]
  - Product use issue [Unknown]
  - Radiotherapy to lung [Unknown]

NARRATIVE: CASE EVENT DATE: 20250101
